FAERS Safety Report 23371716 (Version 3)
Quarter: 2024Q4

REPORT INFORMATION
  Report Type: Spontaneous
  Country: IT (occurrence: IT)
  Receive Date: 20240105
  Receipt Date: 20241114
  Transmission Date: 20250115
  Serious: Yes (Death, Other)
  Sender: TAKEDA
  Company Number: IT-TAKEDA-2024TUS001329

PATIENT
  Sex: Male

DRUGS (1)
  1. ENTYVIO [Suspect]
     Active Substance: VEDOLIZUMAB
     Indication: Product used for unknown indication
     Dosage: UNK

REACTIONS (1)
  - Death [Fatal]
